FAERS Safety Report 7831815-5 (Version None)
Quarter: 2011Q4

REPORT INFORMATION
  Report Type: 
  Country: None (occurrence: None)
  Receive Date: 20111021
  Receipt Date: 20111013
  Transmission Date: 20120403
  Serious: Yes (Other)
  Sender: FDA-Public Use
  Company Number: ES-PFIZER INC-2011252035

PATIENT
  Age: 84 Year
  Sex: Female

DRUGS (1)
  1. MORPHINE SULFATE [Suspect]
     Indication: ARTHRALGIA
     Dosage: 10 MG, 2X/DAY
     Route: 048
     Dates: start: 20110218, end: 20110824

REACTIONS (2)
  - DISORIENTATION [None]
  - CONSTIPATION [None]
